FAERS Safety Report 17153457 (Version 2)
Quarter: 2019Q4

REPORT INFORMATION
  Report Type: Spontaneous
  Country: CN (occurrence: CN)
  Receive Date: 20191213
  Receipt Date: 20191220
  Transmission Date: 20200122
  Serious: Yes (Other)
  Sender: FDA-Public Use
  Company Number: CN-ASTRAZENECA-2019SF79162

PATIENT
  Age: 1050 Month
  Sex: Female
  Weight: 55 kg

DRUGS (1)
  1. IRESSA [Suspect]
     Active Substance: GEFITINIB
     Indication: NON-SMALL CELL LUNG CANCER
     Route: 048
     Dates: start: 201808, end: 201908

REACTIONS (4)
  - Malignant neoplasm progression [Unknown]
  - Condition aggravated [Unknown]
  - Drug resistance [Unknown]
  - Antibody test positive [Unknown]

NARRATIVE: CASE EVENT DATE: 201909
